FAERS Safety Report 9513482 (Version 1)
Quarter: 2013Q3

REPORT INFORMATION
  Report Type: Spontaneous
  Country: None (occurrence: US)
  Receive Date: 20130910
  Receipt Date: 20130910
  Transmission Date: 20140515
  Serious: No
  Sender: FDA-Public Use
  Company Number: US-TARO-2013P1005017

PATIENT
  Age: 67 Year
  Sex: Female

DRUGS (5)
  1. WARFARIN SODIUM TABLETS USP 3MG [Suspect]
  2. WARFARIN SODIUM TABLETS USP 3MG [Suspect]
  3. COUMADIN 1 MG [Suspect]
  4. COUMADIN 1 MG [Suspect]
  5. LORATADINE 10 MG 612 [Suspect]
     Route: 048
     Dates: start: 20130327, end: 20130331

REACTIONS (2)
  - International normalised ratio decreased [Recovering/Resolving]
  - Hypersensitivity [Recovered/Resolved]
